FAERS Safety Report 9186198 (Version 2)
Quarter: 2015Q1

REPORT INFORMATION
  Report Type: Spontaneous
  Country: US (occurrence: US)
  Receive Date: 20130325
  Receipt Date: 20150219
  Transmission Date: 20150721
  Serious: Yes (Hospitalization, Other)
  Sender: FDA-Public Use
  Company Number: US-GLAXOSMITHKLINE-A1016921A

PATIENT
  Age: 56 Year
  Sex: Female
  Weight: 86.4 kg

DRUGS (8)
  1. CALCIUM + MAGNESIUM [Concomitant]
  2. MORPHINE SULPHATE SLOW RELEASE [Concomitant]
  3. VOTRIENT [Suspect]
     Active Substance: PAZOPANIB HYDROCHLORIDE
     Indication: RENAL CANCER
     Dosage: 800 MG, QD
     Route: 048
  4. VITAMIN D3 [Concomitant]
     Active Substance: CHOLECALCIFEROL
  5. MORPHINE SULFATE. [Concomitant]
     Active Substance: MORPHINE SULFATE
  6. CARVEDILOL. [Concomitant]
     Active Substance: CARVEDILOL
  7. NEURONTIN [Concomitant]
     Active Substance: GABAPENTIN
  8. SYMBICORT [Concomitant]
     Active Substance: BUDESONIDE\FORMOTEROL FUMARATE DIHYDRATE

REACTIONS (3)
  - Pneumonia [Unknown]
  - Fatigue [Unknown]
  - Cardiac flutter [Recovered/Resolved]

NARRATIVE: CASE EVENT DATE: 201303
